FAERS Safety Report 13625547 (Version 1)
Quarter: 2017Q2

REPORT INFORMATION
  Report Type: Spontaneous
  Country: FR (occurrence: FR)
  Receive Date: 20170607
  Receipt Date: 20170607
  Transmission Date: 20170830
  Serious: Yes (Other)
  Sender: FDA-Public Use
  Company Number: FR-PFIZER INC-2017240765

PATIENT
  Age: 30 Year
  Sex: Female

DRUGS (5)
  1. LEVOCETIRIZINE [Concomitant]
     Active Substance: LEVOCETIRIZINE
     Dosage: UNK
  2. ASPIRINE [Suspect]
     Active Substance: ASPIRIN
     Dosage: UNK
     Route: 048
  3. AERIUS [Concomitant]
     Active Substance: DESLORATADINE
     Dosage: UNK
  4. MEDROL [Suspect]
     Active Substance: METHYLPREDNISOLONE
     Dosage: UNK
     Route: 048
  5. DOLIPRANE [Suspect]
     Active Substance: ACETAMINOPHEN
     Dosage: UNK
     Route: 048

REACTIONS (1)
  - Angioedema [Recovered/Resolved]

NARRATIVE: CASE EVENT DATE: 20170509
